FAERS Safety Report 5141116-4 (Version None)
Quarter: 2006Q4

REPORT INFORMATION
  Report Type: 
  Country: None (occurrence: None)
  Receive Date: 20061026
  Receipt Date: 20061018
  Transmission Date: 20070319
  Serious: Yes (Other)
  Sender: FDA-Public Use
  Company Number: GXKR2006GB06539

PATIENT
  Age: 56 Year
  Sex: Male

DRUGS (3)
  1. ACETAMINOPHEN W/ CODEINE [Suspect]
     Dosage: 1 DF, ORAL
     Route: 048
     Dates: start: 20060710, end: 20060710
  2. IBUPROFEN [Concomitant]
  3. SALBUTAMOL [Concomitant]

REACTIONS (2)
  - DYSPNOEA [None]
  - SWELLING FACE [None]
